FAERS Safety Report 4723232-1 (Version None)
Quarter: 2005Q3

REPORT INFORMATION
  Report Type: 
  Country: None (occurrence: None)
  Receive Date: 20050719
  Receipt Date: 20040816
  Transmission Date: 20060218
  Serious: Yes (Other)
  Sender: FDA-Public Use
  Company Number: 203166

PATIENT
  Age: 39 Year
  Sex: Female
  Weight: 49.4421 kg

DRUGS (11)
  1. AVONEX [Suspect]
     Indication: MULTIPLE SCLEROSIS
     Dosage: 30 UG; QW; IM
     Route: 030
     Dates: start: 19960101, end: 20020101
  2. AVONEX [Suspect]
     Indication: MULTIPLE SCLEROSIS
     Dosage: 30 UG; QW; IM
     Route: 030
     Dates: start: 20040720
  3. ATENOLOL [Concomitant]
  4. NORVASC [Concomitant]
  5. NECON [Concomitant]
  6. AMANTADINE [Concomitant]
  7. CARBAMAZEPINE [Concomitant]
  8. LORAZEPAM [Concomitant]
  9. PHENOBARBITAL [Concomitant]
  10. MACROBID [Concomitant]
  11. CODEINE [Concomitant]

REACTIONS (4)
  - CONVULSION [None]
  - HYPERTENSION [None]
  - INFLUENZA LIKE ILLNESS [None]
  - MULTIPLE SCLEROSIS [None]
